FAERS Safety Report 4906796-4 (Version None)
Quarter: 2006Q1

REPORT INFORMATION
  Report Type: 
  Country: None (occurrence: None)
  Receive Date: 20060207
  Receipt Date: 20060125
  Transmission Date: 20060701
  Serious: Yes (Death, Hospitalization, Other)
  Sender: FDA-Public Use
  Company Number: 151-20785-06010601

PATIENT
  Age: 72 Year
  Sex: Male

DRUGS (4)
  1. THALIDOMIDE - PHARMION (THALIDOMIDE) (50 MILLIGRAM, CAPSULES) [Suspect]
     Indication: MULTIPLE MYELOMA
     Dosage: 100 MG, DAILY, ORAL
     Route: 048
     Dates: start: 20050501, end: 20051201
  2. CYCLOPHOSPHAMIDE [Suspect]
     Indication: MULTIPLE MYELOMA
     Dates: end: 20051201
  3. PREDNISOLONE [Suspect]
     Indication: MULTIPLE MYELOMA
     Dosage: ORAL
     Route: 048
  4. ANALGESICS (ANALGESICS) [Concomitant]

REACTIONS (3)
  - BONE PAIN [None]
  - SEPTIC SHOCK [None]
  - THROMBOCYTOPENIA [None]
